FAERS Safety Report 4849189-0 (Version None)
Quarter: 2005Q4

REPORT INFORMATION
  Report Type: 
  Country: None (occurrence: None)
  Receive Date: 20051209
  Receipt Date: 20051005
  Transmission Date: 20060501
  Serious: Yes (Hospitalization, Disabling)
  Sender: FDA-Public Use
  Company Number: US-MERCK-0510USA04612

PATIENT
  Age: 58 Year
  Sex: Female
  Weight: 80 kg

DRUGS (21)
  1. VIOXX [Suspect]
     Indication: OSTEOARTHRITIS
     Route: 048
     Dates: start: 20010503, end: 20040930
  2. VIOXX [Suspect]
     Route: 048
     Dates: start: 20010503, end: 20040930
  3. PREMPRO [Concomitant]
     Route: 065
  4. PROZAC [Concomitant]
     Route: 065
  5. LIPITOR [Concomitant]
     Route: 065
  6. CARDIZEM [Concomitant]
     Route: 065
  7. ACTONEL [Concomitant]
     Route: 065
  8. FOSAMAX [Concomitant]
     Route: 065
  9. ANTIVERT [Concomitant]
     Route: 065
  10. PHENERGAN TABLETS/SUPPOSITORIES [Concomitant]
     Route: 065
  11. PLAVIX [Concomitant]
     Route: 065
  12. NITROSTAT [Concomitant]
     Route: 065
  13. NITRO-DUR [Concomitant]
     Route: 065
  14. PREVACID [Concomitant]
     Route: 065
  15. NEURONTIN [Concomitant]
     Route: 065
  16. ULTRAM [Concomitant]
     Route: 065
  17. ZOCOR [Concomitant]
     Route: 065
  18. TRICOR [Concomitant]
     Route: 065
  19. AVAPRO [Concomitant]
     Route: 065
  20. TYLENOL (CAPLET) [Concomitant]
     Route: 065
  21. ASPIRIN [Concomitant]
     Route: 065

REACTIONS (4)
  - CARDIOVASCULAR DISORDER [None]
  - CHEST PAIN [None]
  - GASTROOESOPHAGEAL REFLUX DISEASE [None]
  - VERTIGO [None]
